FAERS Safety Report 6568929-6 (Version None)
Quarter: 2010Q1

REPORT INFORMATION
  Report Type: 
  Country: None (occurrence: None)
  Receive Date: 20100201
  Receipt Date: 20100201
  Transmission Date: 20100710
  Serious: No
  Sender: FDA-Public Use
  Company Number: None

PATIENT
  Sex: Female
  Weight: 113.3993 kg

DRUGS (2)
  1. GABAPENTIN [Suspect]
     Indication: AMNESIA
     Dosage: GABAPENTIN 4X A DAY
  2. NEURONTIN [Suspect]
     Dosage: NEURONTIN 4X A DAY

REACTIONS (1)
  - AMNESIA [None]
